FAERS Safety Report 12270222 (Version 1)
Quarter: 2016Q2

REPORT INFORMATION
  Report Type: Spontaneous
  Country: PL (occurrence: PL)
  Receive Date: 20160415
  Receipt Date: 20160415
  Transmission Date: 20160815
  Serious: Yes (Life-Threatening, Hospitalization, Other)
  Sender: FDA-Public Use
  Company Number: PL-ASTRAZENECA-2016SE38153

PATIENT
  Age: 57 Year
  Sex: Female
  Weight: 92 kg

DRUGS (7)
  1. SETALOFT [Concomitant]
     Indication: DEPRESSION
     Route: 048
  2. METFORMIN [Concomitant]
     Active Substance: METFORMIN HYDROCHLORIDE
     Dates: start: 2005
  3. FORXIGA [Suspect]
     Active Substance: DAPAGLIFLOZIN
     Indication: TYPE 2 DIABETES MELLITUS
     Route: 048
     Dates: start: 20151204, end: 20151211
  4. INSULIN [Concomitant]
     Active Substance: INSULIN NOS
  5. CONCOR COR [Concomitant]
     Active Substance: BISOPROLOL FUMARATE
     Indication: HYPERTENSION
     Route: 048
  6. VASILIP [Concomitant]
     Indication: HYPERLIPIDAEMIA
     Route: 048
  7. INHIBACE [Concomitant]
     Active Substance: CILAZAPRIL ANHYDROUS
     Indication: HYPERTENSION
     Route: 048

REACTIONS (3)
  - Acute prerenal failure [Unknown]
  - Muscle spasms [Unknown]
  - Ketoacidosis [Unknown]
